FAERS Safety Report 8545016-9 (Version None)
Quarter: 2012Q3

REPORT INFORMATION
  Report Type: 
  Country: None (occurrence: None)
  Receive Date: 20120727
  Receipt Date: 20120724
  Transmission Date: 20120928
  Serious: Yes (Death)
  Sender: FDA-Public Use
  Company Number: US-GLAXOSMITHKLINE-B0818442A

PATIENT
  Age: 32 Year
  Sex: Male
  Weight: 63 kg

DRUGS (3)
  1. MULTI-VITAMIN [Concomitant]
     Route: 048
     Dates: start: 20110101
  2. CLARITIN [Concomitant]
     Dosage: 10MG PER DAY
     Route: 048
     Dates: start: 20120624
  3. BUPROPION HCL [Suspect]
     Indication: SMOKING CESSATION THERAPY
     Dosage: 150MG TWICE PER DAY
     Route: 048
     Dates: start: 20120627

REACTIONS (1)
  - DEATH [None]
